FAERS Safety Report 20532016 (Version 4)
Quarter: 2022Q2

REPORT INFORMATION
  Report Type: Spontaneous
  Country: US (occurrence: US)
  Receive Date: 20220301
  Receipt Date: 20220414
  Transmission Date: 20220721
  Serious: Yes (Other)
  Sender: FDA-Public Use
  Company Number: US-PFIZER INC-202200305897

PATIENT
  Age: 51 Year
  Sex: Female
  Weight: 63.492 kg

DRUGS (1)
  1. PREMARIN [Suspect]
     Active Substance: ESTROGENS, CONJUGATED
     Dosage: UNK

REACTIONS (4)
  - Multiple sclerosis [Unknown]
  - Lung neoplasm malignant [Recovering/Resolving]
  - Hysterectomy [Unknown]
  - Product prescribing error [Unknown]
